FAERS Safety Report 15213338 (Version 2)
Quarter: 2018Q3

REPORT INFORMATION
  Report Type: Report from Study
  Country: None (occurrence: AR)
  Receive Date: 20180730
  Receipt Date: 20180821
  Transmission Date: 20181010
  Serious: Yes (Death, Other)
  Sender: FDA-Public Use
  Company Number: AR-ABBVIE-18K-007-2434459-00

PATIENT
  Age: 53 Year
  Sex: Female

DRUGS (2)
  1. HUMIRA [Suspect]
     Active Substance: ADALIMUMAB
     Indication: CROHN^S DISEASE
     Route: 058
  2. HUMIRA [Suspect]
     Active Substance: ADALIMUMAB
     Indication: CROHN^S DISEASE
     Route: 058
     Dates: start: 20130826

REACTIONS (8)
  - Emphysema [Fatal]
  - Intestinal perforation [Unknown]
  - General physical health deterioration [Unknown]
  - Weight decreased [Unknown]
  - Pneumothorax [Fatal]
  - Peritonitis [Unknown]
  - Gastrointestinal disorder [Unknown]
  - Gastrointestinal inflammation [Unknown]

NARRATIVE: CASE EVENT DATE: 201804
